FAERS Safety Report 11347141 (Version 1)
Quarter: 2015Q3

REPORT INFORMATION
  Report Type: Spontaneous
  Country: US (occurrence: US)
  Receive Date: 20150806
  Receipt Date: 20150806
  Transmission Date: 20151125
  Serious: No
  Sender: FDA-Public Use
  Company Number: US-FRESENIUS KABI-FK201402502

PATIENT
  Age: 85 Year
  Sex: Female
  Weight: 46.72 kg

DRUGS (1)
  1. CYANOCOBALAMIN INJECTION, USP [Suspect]
     Active Substance: CYANOCOBALAMIN
     Indication: VITAMIN B12 DECREASED
     Route: 030
     Dates: start: 2013, end: 20140524

REACTIONS (3)
  - Feeling abnormal [Recovered/Resolved]
  - Frequent bowel movements [Recovered/Resolved]
  - Listless [Recovered/Resolved]

NARRATIVE: CASE EVENT DATE: 2013
